FAERS Safety Report 14616865 (Version 1)
Quarter: 2018Q1

REPORT INFORMATION
  Report Type: Spontaneous
  Country: US (occurrence: US)
  Receive Date: 20180309
  Receipt Date: 20180309
  Transmission Date: 20180509
  Serious: Yes (Other)
  Sender: FDA-Public Use
  Company Number: US-DRREDDYS-USA/USA/17/0091036

PATIENT
  Sex: Male
  Weight: 65.77 kg

DRUGS (2)
  1. CLOPIDOGREL BISULFATE 75 MG [Suspect]
     Active Substance: CLOPIDOGREL BISULFATE
     Indication: PRODUCT USED FOR UNKNOWN INDICATION
     Route: 048
     Dates: start: 20161027
  2. ASPIRIN. [Concomitant]
     Active Substance: ASPIRIN
     Indication: PRODUCT USED FOR UNKNOWN INDICATION
     Route: 065

REACTIONS (4)
  - Haemorrhage subcutaneous [Recovering/Resolving]
  - Gingival pain [Not Recovered/Not Resolved]
  - Rash macular [Unknown]
  - Fatigue [Not Recovered/Not Resolved]
